FAERS Safety Report 16795747 (Version 2)
Quarter: 2019Q3

REPORT INFORMATION
  Report Type: Spontaneous
  Country: US (occurrence: US)
  Receive Date: 20190911
  Receipt Date: 20190924
  Transmission Date: 20191005
  Serious: No
  Sender: FDA-Public Use
  Company Number: US-009507513-1909USA003396

PATIENT
  Age: 19 Year
  Sex: Female

DRUGS (1)
  1. NEXPLANON [Suspect]
     Active Substance: ETONOGESTREL
     Indication: CONTRACEPTION
     Dosage: UNK, UNKNOWN
     Route: 059
     Dates: start: 20190822, end: 20190906

REACTIONS (4)
  - Implant site pain [Recovered/Resolved]
  - Back pain [Recovered/Resolved]
  - Complication associated with device [Recovered/Resolved]
  - Implant site hypoaesthesia [Recovered/Resolved]

NARRATIVE: CASE EVENT DATE: 20190826
